FAERS Safety Report 21820708 (Version 1)
Quarter: 2023Q1

REPORT INFORMATION
  Report Type: Spontaneous
  Country: US (occurrence: US)
  Receive Date: 20230105
  Receipt Date: 20230105
  Transmission Date: 20230417
  Serious: No
  Sender: FDA-Public Use
  Company Number: US-PADAGIS-2022PAD01205

PATIENT

DRUGS (1)
  1. IMIQUIMOD [Suspect]
     Active Substance: IMIQUIMOD
     Indication: Pseudolymphoma
     Dosage: 3 TIMES PER WEEK
     Route: 065

REACTIONS (3)
  - Application site haemorrhage [Unknown]
  - Application site irritation [Unknown]
  - Product use in unapproved indication [Unknown]
